FAERS Safety Report 16522378 (Version 4)
Quarter: 2020Q2

REPORT INFORMATION
  Report Type: Spontaneous
  Country: US (occurrence: US)
  Receive Date: 20190703
  Receipt Date: 20200424
  Transmission Date: 20200713
  Serious: No
  Sender: FDA-Public Use
  Company Number: US-PFIZER INC-2019280601

PATIENT
  Age: 67 Year
  Sex: Female

DRUGS (3)
  1. DILANTIN [Suspect]
     Active Substance: PHENYTOIN
     Dosage: 1 DF, 1X/DAY
  2. DILANTIN [Suspect]
     Active Substance: PHENYTOIN
     Dosage: UNK
     Dates: start: 1993
  3. DILANTIN [Suspect]
     Active Substance: PHENYTOIN
     Dosage: 2 CAPSULES, 2X/DAY

REACTIONS (4)
  - Memory impairment [Unknown]
  - Extra dose administered [Unknown]
  - Confusional state [Unknown]
  - Feeling abnormal [Unknown]
